FAERS Safety Report 4712681-3 (Version None)
Quarter: 2005Q3

REPORT INFORMATION
  Report Type: 
  Country: None (occurrence: None)
  Receive Date: 20050708
  Receipt Date: 20050307
  Transmission Date: 20060218
  Serious: Yes (Hospitalization, Other)
  Sender: FDA-Public Use
  Company Number: US-2005-000191

PATIENT
  Age: 48 Year
  Sex: Female
  Weight: 77.1 kg

DRUGS (5)
  1. ULTRAVIST 300 [Suspect]
     Indication: COMPUTERISED TOMOGRAM THORAX
     Dosage: 150 ML, 1 DOSE, INTRAVENOUS
     Route: 042
     Dates: start: 20050106, end: 20050106
  2. NEURONTIN [Concomitant]
  3. FLEXERIL [Concomitant]
  4. DEPAKOTE [Concomitant]
  5. LOVENOX [Concomitant]

REACTIONS (11)
  - BRADYCARDIA [None]
  - BURNING SENSATION [None]
  - CHEST PAIN [None]
  - CHILLS [None]
  - DYSPNOEA [None]
  - FACE OEDEMA [None]
  - HYPOTENSION [None]
  - MUCOUS MEMBRANE DISORDER [None]
  - TREMOR [None]
  - URTICARIA GENERALISED [None]
  - VOMITING [None]
